FAERS Safety Report 14563899 (Version 1)
Quarter: 2018Q1

REPORT INFORMATION
  Report Type: Spontaneous
  Country: GB (occurrence: BD)
  Receive Date: 20180222
  Receipt Date: 20180222
  Transmission Date: 20180509
  Serious: Yes (Other)
  Sender: FDA-Public Use
  Company Number: GB-MYLANLABS-2018M1011512

PATIENT
  Age: 34 Year
  Sex: Male

DRUGS (1)
  1. CIPROFLOXACIN. [Suspect]
     Active Substance: CIPROFLOXACIN
     Indication: TYPHOID FEVER
     Dosage: UNK

REACTIONS (3)
  - Pathogen resistance [Unknown]
  - Product use in unapproved indication [Unknown]
  - Off label use [Unknown]
